FAERS Safety Report 22177121 (Version 3)
Quarter: 2023Q2

REPORT INFORMATION
  Report Type: Report from Study
  Country: CN (occurrence: CN)
  Receive Date: 20230405
  Receipt Date: 20230426
  Transmission Date: 20230721
  Serious: Yes (Hospitalization)
  Sender: FDA-Public Use
  Company Number: CN-JNJFOC-20230365484

PATIENT
  Age: 59 Year
  Sex: Male
  Weight: 72 kg

DRUGS (15)
  1. DARATUMUMAB [Suspect]
     Active Substance: DARATUMUMAB
     Indication: Plasma cell myeloma
     Dosage: WITH MOST RECENT DOSE ON 23-MAR-2023
     Route: 058
     Dates: start: 20221027
  2. TECLISTAMAB [Suspect]
     Active Substance: TECLISTAMAB
     Indication: Plasma cell myeloma
     Dosage: MOST RECENT DOSE: 24/MAR/2023
     Route: 058
     Dates: start: 20221028, end: 20230324
  3. TECLISTAMAB [Suspect]
     Active Substance: TECLISTAMAB
     Dosage: WITH MOST RECENT DOSE ON 13-DEC-2022
     Route: 058
     Dates: start: 20221104, end: 20221213
  4. VITAMIN B1 [Concomitant]
     Active Substance: THIAMINE HYDROCHLORIDE
     Indication: Vitamin B complex deficiency
     Dosage: DOSE: 1 (NO DOSAGE UNIT PROVIDED)
     Route: 048
     Dates: start: 20210301
  5. ADALAT [Concomitant]
     Active Substance: NIFEDIPINE
     Indication: Hypertension
     Dosage: DOSE: 30 (NO DOSAGE UNIT PROVIDED)
     Route: 048
     Dates: start: 20220401
  6. FISH OIL [Concomitant]
     Active Substance: FISH OIL
     Indication: Prophylaxis
     Dosage: DOSE: 1.96 (NO DOSAGE UNIT PROVIDED)
     Route: 048
     Dates: start: 20220701
  7. AMMONIA [Concomitant]
     Active Substance: AMMONIA
     Indication: Prophylaxis
     Dosage: DOSE:2 (NO DOSAGE UNIT PROVIDED)
     Route: 048
     Dates: start: 20220701
  8. FENOFIBRATE [Concomitant]
     Active Substance: FENOFIBRATE
     Indication: Hypertriglyceridaemia
     Route: 048
     Dates: start: 20221117
  9. ENTECAVIR [Concomitant]
     Active Substance: ENTECAVIR
     Indication: Antiviral prophylaxis
     Dosage: DOSE: 0.5 (NO DOSAGE UNIT PROVIDED)
     Route: 048
     Dates: start: 20221206
  10. LEUCOGEN [Concomitant]
     Active Substance: LEUCOGEN
     Indication: Neutrophil count decreased
     Dosage: DOSE: 20 (NO DOSAGE UNIT PROVIDED)
     Route: 048
     Dates: start: 20230218
  11. COMPOUND LIQUORICE [Concomitant]
     Indication: Nasopharyngitis
     Dosage: DOSE: 3 (NO DOSAGE UNIT PROVIDED)
     Route: 048
     Dates: start: 20230312, end: 20230320
  12. THYMALFASIN [Concomitant]
     Active Substance: THYMALFASIN
     Indication: Immune disorder prophylaxis
     Dosage: DOSE: 1.6 (NO DOSAGE UNIT PROVIDED)
     Route: 058
     Dates: start: 20230313, end: 20230315
  13. THYMALFASIN [Concomitant]
     Active Substance: THYMALFASIN
     Dosage: DOSE: 1.6 (NO DOSAGE UNIT PROVIDED)
     Route: 058
     Dates: start: 20230306, end: 20230309
  14. SNAKE BILE [Concomitant]
     Indication: Nasopharyngitis
     Dosage: 10 (NO UNIT PROVIDED)
     Route: 048
     Dates: start: 20230320, end: 20230320
  15. ZOLEDRONIC ACID [Concomitant]
     Active Substance: ZOLEDRONIC ACID
     Indication: Prophylaxis
     Dosage: DOSE: 4 (NO DOSAGE UNIT PROVIDED)
     Route: 042
     Dates: start: 20230223, end: 20230223

REACTIONS (2)
  - Pneumonia fungal [Recovering/Resolving]
  - Pneumonia bacterial [Recovering/Resolving]

NARRATIVE: CASE EVENT DATE: 20230325
